FAERS Safety Report 20659559 (Version 1)
Quarter: 2022Q1

REPORT INFORMATION
  Report Type: Spontaneous
  Country: HR (occurrence: HR)
  Receive Date: 20220331
  Receipt Date: 20220331
  Transmission Date: 20220423
  Serious: Yes (Other)
  Sender: FDA-Public Use
  Company Number: None

PATIENT
  Age: 59 Year
  Sex: Female
  Weight: 90 kg

DRUGS (4)
  1. PREGABALIN [Suspect]
     Active Substance: PREGABALIN
     Dosage: 3.3 G, 1X/DAY
     Route: 048
     Dates: start: 20211115, end: 20211115
  2. ZOLPIDEM TARTRATE [Suspect]
     Active Substance: ZOLPIDEM TARTRATE
     Dosage: 400 MG, 1X/DAY
     Route: 048
     Dates: start: 20211115, end: 20211115
  3. QUETIAPINE [Suspect]
     Active Substance: QUETIAPINE
     Dosage: 5 G, 1X/DAY
     Route: 048
     Dates: start: 20211115, end: 20211115
  4. TIANEPTINE SODIUM [Suspect]
     Active Substance: TIANEPTINE SODIUM
     Dosage: 750 MG, 1X/DAY
     Route: 048
     Dates: start: 20211115, end: 20211115

REACTIONS (5)
  - Intentional overdose [Unknown]
  - Loss of consciousness [Unknown]
  - Sopor [Unknown]
  - Suicide attempt [Unknown]
  - Hypoxia [Unknown]

NARRATIVE: CASE EVENT DATE: 20211115
